FAERS Safety Report 24953815 (Version 1)
Quarter: 2025Q1

REPORT INFORMATION
  Report Type: Spontaneous
  Country: JP (occurrence: JP)
  Receive Date: 20250211
  Receipt Date: 20250211
  Transmission Date: 20250409
  Serious: Yes (Other)
  Sender: ROCHE
  Company Number: JP-CHUGAI-2025003625

PATIENT
  Age: 67 Year
  Sex: Female

DRUGS (9)
  1. AVASTIN [Suspect]
     Active Substance: BEVACIZUMAB
     Indication: Rectosigmoid cancer
     Route: 042
  2. AVASTIN [Suspect]
     Active Substance: BEVACIZUMAB
     Route: 042
  3. OXALIPLATIN [Concomitant]
     Active Substance: OXALIPLATIN
     Indication: Rectosigmoid cancer
     Route: 042
  4. OXALIPLATIN [Concomitant]
     Active Substance: OXALIPLATIN
     Route: 042
  5. GIMERACIL\OTERACIL\TEGAFUR [Concomitant]
     Active Substance: GIMERACIL\OTERACIL POTASSIUM\TEGAFUR
     Indication: Rectosigmoid cancer
     Route: 050
  6. IRINOTECAN HYDROCHLORIDE [Concomitant]
     Active Substance: IRINOTECAN HYDROCHLORIDE
     Indication: Rectosigmoid cancer
     Route: 042
  7. FLUOROURACIL [Concomitant]
     Active Substance: FLUOROURACIL
     Indication: Rectosigmoid cancer
     Route: 042
  8. FLUOROURACIL [Concomitant]
     Active Substance: FLUOROURACIL
     Route: 042
  9. LEVOLEUCOVORIN CALCIUM [Concomitant]
     Active Substance: LEVOLEUCOVORIN CALCIUM
     Indication: Rectosigmoid cancer
     Route: 042

REACTIONS (5)
  - Myelosuppression [Unknown]
  - White blood cell count decreased [Unknown]
  - Neutrophil count decreased [Unknown]
  - Neuropathy peripheral [Unknown]
  - Off label use [Unknown]
